FAERS Safety Report 9073631 (Version 1)
Quarter: 2013Q1

REPORT INFORMATION
  Report Type: Report from Study
  Country: CA (occurrence: CA)
  Receive Date: 20130216
  Receipt Date: 20130216
  Transmission Date: 20140127
  Serious: Yes (Hospitalization)
  Sender: FDA-Public Use
  Company Number: CA-US-EMD SERONO, INC.-7193742

PATIENT
  Sex: Female

DRUGS (1)
  1. REBIF [Suspect]
     Indication: MULTIPLE SCLEROSIS
     Route: 058
     Dates: start: 20120610

REACTIONS (15)
  - Cholelithiasis [Recovering/Resolving]
  - Haemoglobin decreased [Recovering/Resolving]
  - Weight decreased [Recovering/Resolving]
  - Decreased appetite [Recovering/Resolving]
  - Nausea [Recovering/Resolving]
  - Pancreatitis [Recovering/Resolving]
  - Peritonitis [Recovering/Resolving]
  - Hepatic enzyme increased [Recovering/Resolving]
  - Multiple sclerosis [Unknown]
  - Diarrhoea [Recovered/Resolved]
  - Faeces discoloured [Recovered/Resolved]
  - Gastrointestinal motility disorder [Recovered/Resolved]
  - Hypoaesthesia [Unknown]
  - Cow^s milk intolerance [Unknown]
  - Asthenia [Unknown]
